FAERS Safety Report 25206674 (Version 1)
Quarter: 2025Q2

REPORT INFORMATION
  Report Type: Spontaneous
  Country: US (occurrence: US)
  Receive Date: 20250417
  Receipt Date: 20250417
  Transmission Date: 20250717
  Serious: No
  Sender: ASTELLAS
  Company Number: US-ASTELLAS-2025-AER-016559

PATIENT
  Age: 74 Year
  Sex: Female

DRUGS (4)
  1. LEXISCAN [Suspect]
     Active Substance: REGADENOSON
     Indication: Cardiac stress test
     Route: 042
  2. LEXISCAN [Suspect]
     Active Substance: REGADENOSON
  3. LEXISCAN [Suspect]
     Active Substance: REGADENOSON
  4. LEXISCAN [Suspect]
     Active Substance: REGADENOSON

REACTIONS (2)
  - Feeling abnormal [Unknown]
  - Pain [Unknown]
